FAERS Safety Report 6816687-X (Version None)
Quarter: 2010Q3

REPORT INFORMATION
  Report Type: 
  Country: None (occurrence: None)
  Receive Date: 20100706
  Receipt Date: 20100630
  Transmission Date: 20110219
  Serious: No
  Sender: FDA-Public Use
  Company Number: US-ROXANE LABORATORIES, INC.-2010-RO-00784RO

PATIENT
  Age: 80 Year
  Sex: Female

DRUGS (1)
  1. METHADONE HCL [Suspect]
     Indication: BACK PAIN
     Dosage: 120 MG
     Route: 048
     Dates: start: 20100627

REACTIONS (2)
  - ASTHENIA [None]
  - TREMOR [None]
